FAERS Safety Report 11911515 (Version 3)
Quarter: 2016Q1

REPORT INFORMATION
  Report Type: Spontaneous
  Country: US (occurrence: US)
  Receive Date: 20160112
  Receipt Date: 20160304
  Transmission Date: 20160526
  Serious: Yes (Other)
  Sender: FDA-Public Use
  Company Number: US-PFIZER INC-2014094641

PATIENT
  Age: 84 Year
  Sex: Female

DRUGS (2)
  1. LATANOPROST. [Suspect]
     Active Substance: LATANOPROST
     Indication: ANGLE CLOSURE GLAUCOMA
     Dosage: 1 DROP EACH EYE, AT NIGHT
     Route: 047
     Dates: start: 201109
  2. ARTIFICIAL TEARS /00445101/ [Concomitant]
     Dosage: UNK

REACTIONS (3)
  - Growth of eyelashes [Not Recovered/Not Resolved]
  - Hair growth abnormal [Not Recovered/Not Resolved]
  - Cataract [Recovered/Resolved]
